FAERS Safety Report 7795322-0 (Version None)
Quarter: 2011Q4

REPORT INFORMATION
  Report Type: 
  Country: None (occurrence: None)
  Receive Date: 20111004
  Receipt Date: 20110928
  Transmission Date: 20120403
  Serious: Yes (Other)
  Sender: FDA-Public Use
  Company Number: PHHY2010MX70773

PATIENT
  Age: 54 Year
  Sex: Female

DRUGS (2)
  1. ZOLEDRONOC ACID [Suspect]
     Indication: OSTEOPOROSIS
     Dosage: 5 MG/100 ML, PER YEAR
     Route: 042
     Dates: start: 20100201
  2. CORTISONE ACETATE [Concomitant]

REACTIONS (3)
  - MEDICAL DEVICE COMPLICATION [None]
  - HIP DEFORMITY [None]
  - DEVICE RELATED INFECTION [None]
